FAERS Safety Report 5666011-3 (Version None)
Quarter: 2008Q1

REPORT INFORMATION
  Report Type: 
  Country: None (occurrence: None)
  Receive Date: 20080314
  Receipt Date: 20031002
  Transmission Date: 20080703
  Serious: No
  Sender: FDA-Public Use
  Company Number: US-ABBOTT-07P-163-0429710-00

PATIENT
  Sex: Female

DRUGS (3)
  1. HUMIRA [Suspect]
     Indication: DRUG USE FOR UNKNOWN INDICATION
  2. FLU VACCINE [Concomitant]
  3. PNEUMOCOCCAL VACCINE [Concomitant]

REACTIONS (2)
  - ABDOMINAL PAIN UPPER [None]
  - MAMMOGRAM ABNORMAL [None]
